FAERS Safety Report 8460376-5 (Version None)
Quarter: 2012Q2

REPORT INFORMATION
  Report Type: 
  Country: None (occurrence: None)
  Receive Date: 20120622
  Receipt Date: 20120613
  Transmission Date: 20120825
  Serious: No
  Sender: FDA-Public Use
  Company Number: US-ASTRAZENECA-2012SE40066

PATIENT
  Age: 62 Year
  Sex: Female

DRUGS (4)
  1. NEXIUM [Suspect]
     Route: 048
  2. WATER PILL [Concomitant]
  3. LEVOTHYROXINE [Concomitant]
     Indication: THYROID DISORDER
  4. CRESTOR [Suspect]
     Route: 048

REACTIONS (3)
  - OESOPHAGEAL PAIN [None]
  - INTENTIONAL DRUG MISUSE [None]
  - HIATUS HERNIA [None]
